FAERS Safety Report 6539757-2 (Version None)
Quarter: 2010Q1

REPORT INFORMATION
  Report Type: 
  Country: None (occurrence: None)
  Receive Date: 20100115
  Receipt Date: 20100113
  Transmission Date: 20100710
  Serious: Yes (Other)
  Sender: FDA-Public Use
  Company Number: ES-WYE-H07066608

PATIENT
  Age: 61 Year
  Sex: Female

DRUGS (4)
  1. DOBUPAL [Suspect]
     Indication: DEPRESSION
  2. DOBUPAL [Suspect]
     Indication: PSYCHOTIC DISORDER
  3. ZYPREXA [Concomitant]
     Indication: PARANOIA
  4. LORAMET [Concomitant]
     Indication: PARANOIA

REACTIONS (1)
  - ALVEOLITIS ALLERGIC [None]
